FAERS Safety Report 23712468 (Version 1)
Quarter: 2024Q2

REPORT INFORMATION
  Report Type: Spontaneous
  Country: JP (occurrence: JP)
  Receive Date: 20240405
  Receipt Date: 20240405
  Transmission Date: 20240716
  Serious: Yes (Death, Hospitalization)
  Sender: FDA-Public Use
  Company Number: JP-NOVITIUMPHARMA-2024JPNVP00408

PATIENT
  Age: 78 Year
  Sex: Male

DRUGS (8)
  1. LEVOFLOXACIN [Suspect]
     Active Substance: LEVOFLOXACIN
     Indication: Conjunctivitis
  2. LEVOFLOXACIN [Suspect]
     Active Substance: LEVOFLOXACIN
     Indication: Cellulitis staphylococcal
  3. METHYLPREDNISOLONE [Concomitant]
     Active Substance: METHYLPREDNISOLONE
     Indication: Conjunctivitis
  4. METHYLPREDNISOLONE [Concomitant]
     Active Substance: METHYLPREDNISOLONE
     Indication: Cellulitis staphylococcal
  5. MEROPENEM [Concomitant]
     Active Substance: MEROPENEM
     Indication: Conjunctivitis
  6. MEROPENEM [Concomitant]
     Active Substance: MEROPENEM
     Indication: Cellulitis staphylococcal
  7. VANCOMYCIN [Concomitant]
     Active Substance: VANCOMYCIN
     Indication: Conjunctivitis
  8. VANCOMYCIN [Concomitant]
     Active Substance: VANCOMYCIN
     Indication: Cellulitis staphylococcal

REACTIONS (1)
  - Drug ineffective [Fatal]
